FAERS Safety Report 7204245-7 (Version None)
Quarter: 2010Q4

REPORT INFORMATION
  Report Type: 
  Country: None (occurrence: None)
  Receive Date: 20101230
  Receipt Date: 20101228
  Transmission Date: 20110411
  Serious: Yes (Disabling, Other)
  Sender: FDA-Public Use
  Company Number: BR-PFIZER INC-2010177066

PATIENT
  Age: 81 Year
  Sex: Female
  Weight: 60 kg

DRUGS (7)
  1. NORVASC [Suspect]
     Indication: TACHYCARDIA
     Dosage: 5 MG, 1X/DAY
     Route: 048
     Dates: start: 19950101
  2. ATENOLOL [Concomitant]
     Indication: HYPERTENSION
     Dosage: 25 MG, UNK
  3. GABAPENTIN [Concomitant]
     Indication: NERVE ROOT INJURY LUMBAR
     Dosage: 400 MG, UNK
  4. METFORMIN [Concomitant]
     Indication: TYPE 2 DIABETES MELLITUS
     Dosage: 850 MG, UNK
  5. PREDNISONE [Concomitant]
     Indication: NERVE ROOT INJURY LUMBAR
     Dosage: UNK
  6. GLIBENCLAMIDE [Concomitant]
     Indication: TYPE 2 DIABETES MELLITUS
     Dosage: 40 MG, UNK
  7. ALENDRONATE SODIUM [Concomitant]
     Indication: OSTEOPOROSIS
     Dosage: UNK

REACTIONS (10)
  - BACK PAIN [None]
  - BURNING SENSATION [None]
  - GAIT DISTURBANCE [None]
  - HYPERGLYCAEMIA [None]
  - NOCTURIA [None]
  - PAIN IN EXTREMITY [None]
  - TINNITUS [None]
  - TREMOR [None]
  - VISION BLURRED [None]
  - VISUAL ACUITY REDUCED [None]
